FAERS Safety Report 4279142-X (Version None)
Quarter: 2004Q1

REPORT INFORMATION
  Report Type: 
  Country: None (occurrence: None)
  Receive Date: 20040122
  Receipt Date: 20040114
  Transmission Date: 20041129
  Serious: Yes (Death)
  Sender: FDA-Public Use
  Company Number: K200301936

PATIENT
  Age: 35 Year
  Sex: Male

DRUGS (2)
  1. BICILLIN L-A [Suspect]
     Indication: RHEUMATIC HEART DISEASE
     Dosage: SINGLE
     Route: 030
  2. BICILLIN L-A [Suspect]
     Dates: start: 20031216, end: 20031216

REACTIONS (5)
  - ANAPHYLACTIC REACTION [None]
  - CARDIOPULMONARY FAILURE [None]
  - HYPOTENSION [None]
  - SHOCK [None]
  - VOMITING [None]
